FAERS Safety Report 10177904 (Version 1)
Quarter: 2014Q2

REPORT INFORMATION
  Report Type: Spontaneous
  Country: GB (occurrence: GB)
  Receive Date: 20140516
  Receipt Date: 20140516
  Transmission Date: 20141212
  Serious: Yes (Disabling)
  Sender: FDA-Public Use
  Company Number: GB-SANTEN INC.-INC-14-000127

PATIENT
  Age: 69 Year
  Sex: Female
  Weight: 74.8 kg

DRUGS (5)
  1. OFTAQUIX (LEVOFLOXACIN 0.5%) [Suspect]
     Dates: start: 20140220
  2. PAROXETINE [Concomitant]
     Dates: start: 20131212, end: 20140402
  3. TERBUTALINE [Concomitant]
     Dates: start: 20131212, end: 20140402
  4. ASMABEC [Concomitant]
     Dates: start: 20131212, end: 20140111
  5. ERYTHROMYCIN [Concomitant]
     Dates: start: 20140102, end: 20140109

REACTIONS (3)
  - Arthralgia [Recovering/Resolving]
  - Arthropathy [Recovering/Resolving]
  - Influenza [Unknown]
